FAERS Safety Report 9745314 (Version 11)
Quarter: 2014Q1

REPORT INFORMATION
  Report Type: Report from Study
  Country: CA (occurrence: CA)
  Receive Date: 20131211
  Receipt Date: 20140204
  Transmission Date: 20141002
  Serious: Yes (Other)
  Sender: FDA-Public Use
  Company Number: CA-ROCHE-1294954

PATIENT
  Age: 63 Year
  Sex: Female
  Weight: 55 kg

DRUGS (7)
  1. AVASTIN [Suspect]
     Indication: BREAST CANCER METASTATIC
     Route: 042
     Dates: start: 201106
  2. AVASTIN [Suspect]
     Route: 042
     Dates: start: 20131009
  3. AVASTIN [Suspect]
     Route: 042
     Dates: start: 20131028
  4. CAELYX [Suspect]
     Indication: BREAST CANCER METASTATIC
     Route: 065
     Dates: start: 201106
  5. LEVOTHYROXINE [Concomitant]
  6. VITAMIN B6 [Concomitant]
  7. VITAMIN B5 [Concomitant]

REACTIONS (14)
  - Gamma-glutamyltransferase increased [Unknown]
  - Gamma-glutamyltransferase increased [Unknown]
  - Allergy to chemicals [Unknown]
  - Erythema [Recovered/Resolved]
  - Seasonal allergy [Unknown]
  - Oral disorder [Recovered/Resolved]
  - Pain in extremity [Recovered/Resolved]
  - Blood pressure increased [Unknown]
  - Off label use [Unknown]
  - Red cell distribution width increased [Unknown]
  - Blood creatinine decreased [Unknown]
  - Blood albumin decreased [Unknown]
  - Dermatitis contact [Recovering/Resolving]
  - Poor quality sleep [Unknown]
